FAERS Safety Report 6259601-0 (Version None)
Quarter: 2009Q3

REPORT INFORMATION
  Report Type: 
  Country: None (occurrence: None)
  Receive Date: 20090708
  Receipt Date: 20080320
  Transmission Date: 20100115
  Serious: Yes (Other)
  Sender: FDA-Public Use
  Company Number: US-ASTRAZENECA-2007UW21502

PATIENT
  Age: 479 Month
  Sex: Female
  Weight: 87.5 kg

DRUGS (12)
  1. SEROQUEL [Suspect]
     Indication: ANXIETY
     Dosage: 600-800 MG
     Route: 048
     Dates: start: 20060110
  2. SEROQUEL [Suspect]
     Indication: DEPRESSION
     Dosage: 600-800 MG
     Route: 048
     Dates: start: 20060110
  3. SEROQUEL [Suspect]
     Dosage: 200 MG - 600 MG
     Route: 048
     Dates: start: 20060101, end: 20070101
  4. SEROQUEL [Suspect]
     Dosage: 200 MG - 600 MG
     Route: 048
     Dates: start: 20060101, end: 20070101
  5. KLONOPIN [Concomitant]
  6. NEURONTIN [Concomitant]
  7. CYMBALTA [Concomitant]
  8. LIPITOR [Concomitant]
  9. TRICOR [Concomitant]
  10. CYTOMEL [Concomitant]
  11. ABILIFY [Concomitant]
  12. DIAZEPAM [Concomitant]

REACTIONS (3)
  - DIABETES MELLITUS [None]
  - DIABETIC NEUROPATHY [None]
  - TYPE 2 DIABETES MELLITUS [None]
